FAERS Safety Report 22210859 (Version 1)
Quarter: 2023Q2

REPORT INFORMATION
  Report Type: Spontaneous
  Country: None (occurrence: GB)
  Receive Date: 20230414
  Receipt Date: 20230414
  Transmission Date: 20230721
  Serious: Yes (Hospitalization, Other)
  Sender: FDA-Public Use
  Company Number: GB-Therakind Limited-2140331

PATIENT
  Age: 15 Year
  Sex: Female
  Weight: 50.2 kg

DRUGS (9)
  1. METHOTREXATE [Suspect]
     Active Substance: METHOTREXATE
     Indication: Diffuse large B-cell lymphoma
  2. CYCLOPHOSPHAMIDE [Suspect]
     Active Substance: CYCLOPHOSPHAMIDE
  3. CYTARABINE [Suspect]
     Active Substance: CYTARABINE
  4. DEXAMETHASONE [Suspect]
     Active Substance: DEXAMETHASONE
     Dates: start: 20221023
  5. DOXORUBICIN HYDROCHLORIDE [Suspect]
     Active Substance: DOXORUBICIN HYDROCHLORIDE
     Dates: start: 20221114
  6. ETOPOSIDE [Suspect]
     Active Substance: ETOPOSIDE
  7. ONCOVIN [Suspect]
     Active Substance: VINCRISTINE SULFATE
  8. PREDNISONE [Suspect]
     Active Substance: PREDNISONE
     Dates: start: 20221103
  9. RITUXIMAB [Suspect]
     Active Substance: RITUXIMAB

REACTIONS (10)
  - Post procedural infection [Unknown]
  - Mucosal inflammation [Unknown]
  - Hypernatraemia [Unknown]
  - Genital infection [Unknown]
  - Hypovolaemic shock [Unknown]
  - Hypothermia [Unknown]
  - Vulval abscess [Unknown]
  - Skin exfoliation [Unknown]
  - Malignant neoplasm progression [Unknown]
  - Product use in unapproved indication [Unknown]
